FAERS Safety Report 9902660 (Version 2)
Quarter: 2014Q3

REPORT INFORMATION
  Report Type: Spontaneous
  Country: US (occurrence: US)
  Receive Date: 20140217
  Receipt Date: 20140919
  Transmission Date: 20150326
  Serious: Yes (Hospitalization)
  Sender: FDA-Public Use
  Company Number: US-BAYER-2014-024531

PATIENT
  Age: 47 Year
  Sex: Female
  Weight: 83.45 kg

DRUGS (11)
  1. YAZ [Suspect]
     Active Substance: DROSPIRENONE\ETHINYL ESTRADIOL
  2. CARISOPRODOL. [Concomitant]
     Active Substance: CARISOPRODOL
     Dosage: 250 MG, UNK
     Dates: start: 20110317
  3. YASMIN [Suspect]
     Active Substance: DROSPIRENONE\ETHINYL ESTRADIOL
  4. MOTRIN [Concomitant]
     Active Substance: IBUPROFEN
     Dosage: 600 EVERY 6 HOURS
     Route: 048
     Dates: start: 20110412
  5. ROCALTROL [Concomitant]
     Active Substance: CALCITRIOL
     Indication: HYPOCALCAEMIA
     Dosage: 0.5 ?G, BID
     Route: 048
     Dates: start: 20110412
  6. OCELLA [Suspect]
     Active Substance: DROSPIRENONE\ETHINYL ESTRADIOL
  7. NAPROXEN. [Concomitant]
     Active Substance: NAPROXEN
     Dosage: 500 MG, UNK
     Dates: start: 20110317
  8. CALCIUM W/VITAMIN D NOS [Concomitant]
     Active Substance: CALCIUM\VITAMIN D
     Indication: HYPOCALCAEMIA
     Dosage: BID
     Dates: start: 20110412
  9. SYNTHROID [Concomitant]
     Active Substance: LEVOTHYROXINE SODIUM
     Indication: HYPOTHYROIDISM
     Dosage: 175 ?G, DAILY
     Route: 048
     Dates: start: 20110412
  10. VICODIN [Concomitant]
     Active Substance: ACETAMINOPHEN\HYDROCODONE BITARTRATE
     Dosage: 5/500 EVERY 4 HOURS AS NEEDED
     Route: 048
     Dates: start: 20110412
  11. FLEXERIL [Concomitant]
     Active Substance: CYCLOBENZAPRINE HYDROCHLORIDE
     Dosage: 10 MG, EVERY 8 HOURS
     Route: 048
     Dates: start: 20110412

REACTIONS (4)
  - Pain [Recovered/Resolved]
  - Pulmonary embolism [Recovered/Resolved]
  - Pain [None]
  - Injury [Recovered/Resolved]

NARRATIVE: CASE EVENT DATE: 20110412
